FAERS Safety Report 8559991-X (Version None)
Quarter: 2012Q3

REPORT INFORMATION
  Report Type: 
  Country: None (occurrence: None)
  Receive Date: 20120802
  Receipt Date: 20120726
  Transmission Date: 20120928
  Serious: Yes (Other)
  Sender: FDA-Public Use
  Company Number: JP-PFIZER INC-2012159606

PATIENT
  Age: 10 Year
  Sex: Female

DRUGS (8)
  1. GABAPENTIN [Suspect]
     Indication: EPILEPSY
     Dosage: 1000MG:(400MG X 2 + 200MG X 1) DAILY
     Route: 048
  2. MENDON [Concomitant]
     Dosage: 22.5 MG/DAY
     Route: 048
  3. PREDNISOLONE [Concomitant]
     Dosage: 10 MG/DAY
     Route: 048
  4. LANSOPRAZOLE [Concomitant]
     Dosage: 15 MG/DAY
     Route: 048
  5. PHENOBARBITAL TAB [Concomitant]
     Dosage: 90 MG/DAY
     Route: 048
  6. LAMICTAL [Concomitant]
     Dosage: 350 MG/DAY
     Route: 048
  7. DIAZEPAM [Concomitant]
     Dosage: 0.8 G/DAY
     Route: 048
  8. ZONISAMIDE [Concomitant]
     Dosage: 300 MG/DAY
     Route: 048

REACTIONS (2)
  - DYSCALCULIA [None]
  - REGRESSIVE BEHAVIOUR [None]
